FAERS Safety Report 6574153-3 (Version None)
Quarter: 2010Q1

REPORT INFORMATION
  Report Type: 
  Country: None (occurrence: None)
  Receive Date: 20100208
  Receipt Date: 20100131
  Transmission Date: 20100710
  Serious: Yes (Other)
  Sender: FDA-Public Use
  Company Number: ES-AMGEN-QUU389659

PATIENT
  Sex: Female

DRUGS (1)
  1. ARANESP [Suspect]
     Indication: DRUG USE FOR UNKNOWN INDICATION

REACTIONS (1)
  - ABORTION THREATENED [None]
